FAERS Safety Report 9572103 (Version 1)
Quarter: 2013Q4

REPORT INFORMATION
  Report Type: Spontaneous
  Country: US (occurrence: US)
  Receive Date: 20131001
  Receipt Date: 20131001
  Transmission Date: 20140711
  Serious: Yes (Other)
  Sender: FDA-Public Use
  Company Number: US-ASTRAZENECA-2013SE71143

PATIENT
  Age: 78 Year
  Sex: Female
  Weight: 64.4 kg

DRUGS (6)
  1. SYMBICORT [Suspect]
     Indication: CHRONIC OBSTRUCTIVE PULMONARY DISEASE
     Dosage: 160/4.5 TWO PUFFS BID
     Route: 055
  2. SYMBICORT [Suspect]
     Indication: ASTHMA
     Dosage: 160/4.5 TWO PUFFS BID
     Route: 055
  3. ALBUTEROL IPOTROPIUM [Concomitant]
     Indication: CHRONIC OBSTRUCTIVE PULMONARY DISEASE
  4. THYROXIN [Concomitant]
     Indication: HYPOTHYROIDISM
  5. ASPIRIN [Concomitant]
     Indication: PROPHYLAXIS
  6. LUMAGAN EYE DROPS [Concomitant]
     Indication: GLAUCOMA

REACTIONS (3)
  - Blindness [Unknown]
  - Age-related macular degeneration [Unknown]
  - Glaucoma [Unknown]
